FAERS Safety Report 7653825-3 (Version None)
Quarter: 2011Q3

REPORT INFORMATION
  Report Type: 
  Country: None (occurrence: None)
  Receive Date: 20110803
  Receipt Date: 20110801
  Transmission Date: 20111222
  Serious: Yes (Life-Threatening, Hospitalization, Other)
  Sender: FDA-Public Use
  Company Number: US-PFIZER INC-2011175153

PATIENT
  Sex: Male
  Weight: 55 kg

DRUGS (7)
  1. VALIUM [Suspect]
     Dosage: 80 MG, UNK
  2. XANAX [Suspect]
     Dosage: UNK
  3. HYDROCODONE [Concomitant]
     Dosage: UNK
  4. DIAZEPAM [Suspect]
     Dosage: DOSE DOUBLED
  5. DILAUDID [Suspect]
     Indication: PAIN
     Dosage: 84 MG, AS NEEDED
  6. XANAX [Suspect]
     Indication: ANXIETY
     Dosage: 1 MG, 5X/DAY
  7. DIAZEPAM [Suspect]
     Dosage: 410 MG, 4X/DAY

REACTIONS (6)
  - EYE MOVEMENT DISORDER [None]
  - FATIGUE [None]
  - INSOMNIA [None]
  - MYOCARDIAL INFARCTION [None]
  - WEIGHT INCREASED [None]
  - TACHYCARDIA [None]
